FAERS Safety Report 4382590-0 (Version None)
Quarter: 2004Q2

REPORT INFORMATION
  Report Type: 
  Country: None (occurrence: None)
  Receive Date: 20040622
  Receipt Date: 20040615
  Transmission Date: 20050107
  Serious: Yes (Disabling)
  Sender: FDA-Public Use
  Company Number: US-MERCK-0406USA01592

PATIENT
  Age: 59 Year
  Sex: Female

DRUGS (14)
  1. DARVOCET-N 100 [Concomitant]
     Route: 065
  2. VENTOLIN [Concomitant]
     Route: 065
  3. FOSAMAX [Concomitant]
     Route: 048
  4. ELAVIL [Concomitant]
     Route: 048
  5. CAPTOPRIL [Concomitant]
     Route: 065
  6. NEXIUM [Concomitant]
     Route: 065
  7. ADVAIR DISKUS 100/50 [Concomitant]
     Route: 065
  8. LASIX [Concomitant]
     Route: 065
  9. SYNTHROID [Concomitant]
     Route: 065
  10. PREDNISONE [Concomitant]
     Route: 065
  11. ZOCOR [Suspect]
     Indication: BLOOD CHOLESTEROL INCREASED
     Route: 048
     Dates: end: 20040614
  12. THEO-DUR [Concomitant]
     Route: 065
  13. VERAPAMIL [Concomitant]
     Route: 065
  14. CALAN [Concomitant]
     Route: 065

REACTIONS (3)
  - HYPOAESTHESIA [None]
  - MUSCLE CRAMP [None]
  - PARAESTHESIA [None]
